FAERS Safety Report 4644492-1 (Version None)
Quarter: 2005Q2

REPORT INFORMATION
  Report Type: 
  Country: None (occurrence: None)
  Receive Date: 20050425
  Receipt Date: 20050425
  Transmission Date: 20051028
  Serious: No
  Sender: FDA-Public Use
  Company Number: None

PATIENT
  Age: 23 Year
  Sex: Female
  Weight: 58.514 kg

DRUGS (1)
  1. ADDERALL XR 10 [Suspect]

REACTIONS (1)
  - SOMNOLENCE [None]
